FAERS Safety Report 24084582 (Version 1)
Quarter: 2024Q3

REPORT INFORMATION
  Report Type: Spontaneous
  Country: IT (occurrence: IT)
  Receive Date: 20240712
  Receipt Date: 20240712
  Transmission Date: 20241017
  Serious: No
  Sender: PIERRE FABRE MEDICAMENT
  Company Number: IT-PFM-2022-01028

PATIENT
  Age: 32 Year
  Sex: Male

DRUGS (4)
  1. PROPRANOLOL [Suspect]
     Active Substance: PROPRANOLOL HYDROCHLORIDE
     Indication: Product used for unknown indication
     Dosage: 40 MG/ DAILY
     Route: 065
  2. METHIMAZOLE [Suspect]
     Active Substance: METHIMAZOLE
     Indication: Product used for unknown indication
     Dosage: 15 MG/ DAILY
     Route: 065
  3. PROPYLTHIOURACIL [Concomitant]
     Active Substance: PROPYLTHIOURACIL
     Indication: Product used for unknown indication
     Dosage: 150 MG/ DAILY
     Route: 065
  4. PROPYLTHIOURACIL [Concomitant]
     Active Substance: PROPYLTHIOURACIL
     Dosage: 100 MG/ DAILY
     Route: 065

REACTIONS (2)
  - Off label use [Unknown]
  - Product use issue [Unknown]
